FAERS Safety Report 4280065-0 (Version None)
Quarter: 2004Q1

REPORT INFORMATION
  Report Type: 
  Country: None (occurrence: None)
  Receive Date: 20040126
  Receipt Date: 20040113
  Transmission Date: 20041129
  Serious: Yes (Hospitalization)
  Sender: FDA-Public Use
  Company Number: 2004002424

PATIENT
  Age: 39 Year
  Sex: Female

DRUGS (1)
  1. PIROXICAM [Suspect]
     Indication: JOINT SPRAIN
     Dosage: 20 MG (DAILY), ORAL
     Route: 048
     Dates: start: 20011001, end: 20010101

REACTIONS (15)
  - ABDOMINAL PAIN [None]
  - ANGIONEUROTIC OEDEMA [None]
  - ASCITES [None]
  - BLOOD ALBUMIN DECREASED [None]
  - CAPILLARY LEAK SYNDROME [None]
  - GAMMA-GLUTAMYLTRANSFERASE INCREASED [None]
  - HEPATOJUGULAR REFLUX [None]
  - HEPATOMEGALY [None]
  - HYPERSENSITIVITY [None]
  - PITTING OEDEMA [None]
  - PLEURAL EFFUSION [None]
  - PLEURISY [None]
  - ULTRASOUND SCAN ABNORMAL [None]
  - URTICARIA [None]
  - WEIGHT INCREASED [None]
